FAERS Safety Report 12340659 (Version 1)
Quarter: 2016Q2

REPORT INFORMATION
  Report Type: Spontaneous
  Country: CN (occurrence: CN)
  Receive Date: 20160506
  Receipt Date: 20160506
  Transmission Date: 20160815
  Serious: Yes (Hospitalization)
  Sender: FDA-Public Use
  Company Number: CN-BAYER-2016-079975

PATIENT
  Sex: Female
  Weight: 54 kg

DRUGS (8)
  1. METHYLPREDNISOLONE SODIUM SUCCINATE. [Concomitant]
     Active Substance: METHYLPREDNISOLONE SODIUM SUCCINATE
     Indication: LUNG INFECTION
     Dosage: 40 MG, QD
     Route: 042
     Dates: start: 20151112, end: 20151118
  2. CEFTIZOXIME [Concomitant]
     Active Substance: CEFTIZOXIME
     Indication: LUNG INFECTION
     Dosage: UNK
  3. NORVANCOMYCIN [Concomitant]
     Active Substance: VANCOMYCIN
     Dosage: UNK
  4. CEFOPERAZONE [Concomitant]
     Active Substance: CEFOPERAZONE
     Dosage: UNK
  5. AVELOX [Suspect]
     Active Substance: MOXIFLOXACIN HYDROCHLORIDE
     Indication: LUNG INFECTION
     Dosage: 250 ML, QD
     Route: 041
     Dates: start: 20151112, end: 20151118
  6. LOSEC [Suspect]
     Active Substance: OMEPRAZOLE
     Indication: STRESS ULCER
     Dosage: 40 MG, QD
     Route: 041
     Dates: start: 20151113, end: 20151117
  7. MEROPENEM. [Concomitant]
     Active Substance: MEROPENEM
     Indication: LUNG INFECTION
     Dosage: 1 G, Q72HR
     Route: 041
     Dates: start: 20151112, end: 20151118
  8. SULBACTAM SODIUM [Concomitant]
     Active Substance: SULBACTAM SODIUM
     Dosage: UNK

REACTIONS (1)
  - Blood creatine phosphokinase increased [Recovering/Resolving]
